FAERS Safety Report 5014715-8 (Version None)
Quarter: 2006Q2

REPORT INFORMATION
  Report Type: 
  Country: None (occurrence: None)
  Receive Date: 20060531
  Receipt Date: 20060524
  Transmission Date: 20061013
  Serious: Yes (Life-Threatening, Hospitalization, Disabling, Other)
  Sender: FDA-Public Use
  Company Number: US-GLAXOSMITHKLINE-A0606793A

PATIENT
  Sex: Female

DRUGS (13)
  1. AVANDIA [Suspect]
     Dosage: 8MG PER DAY
     Route: 048
     Dates: end: 20060516
  2. DIOVAN [Concomitant]
  3. GLUCOPHAGE [Concomitant]
  4. CALTRATE [Concomitant]
  5. PREVACID [Concomitant]
  6. SYNTHROID [Concomitant]
  7. CLONIDINE [Concomitant]
  8. TRICOR [Concomitant]
  9. ATENOLOL [Concomitant]
  10. HYDROCHLOROTHIAZIDE [Concomitant]
  11. LORTAB [Concomitant]
  12. LORAZEPAM [Concomitant]
  13. GLIPIZIDE [Concomitant]

REACTIONS (2)
  - HYPOGLYCAEMIA [None]
  - RENAL FAILURE [None]
